FAERS Safety Report 19445287 (Version 1)
Quarter: 2021Q2

REPORT INFORMATION
  Report Type: Spontaneous
  Country: US (occurrence: US)
  Receive Date: 20210621
  Receipt Date: 20210621
  Transmission Date: 20210717
  Serious: No
  Sender: FDA-Public Use
  Company Number: US-SA-2021SA156184

PATIENT
  Sex: Female

DRUGS (15)
  1. ESOMEPRAZOLE MAGNESIUM. [Concomitant]
     Active Substance: ESOMEPRAZOLE MAGNESIUM
  2. TRAMADOL. [Concomitant]
     Active Substance: TRAMADOL
  3. FINACEA [Concomitant]
     Active Substance: AZELAIC ACID
  4. SOOLANTRA [Concomitant]
     Active Substance: IVERMECTIN
  5. DICLOFENAC SODIUM. [Concomitant]
     Active Substance: DICLOFENAC SODIUM
  6. AZELAIC ACID. [Concomitant]
     Active Substance: AZELAIC ACID
  7. CHOLESTYRAMINE. [Concomitant]
     Active Substance: CHOLESTYRAMINE
  8. POTASSIUM CHLORIDE. [Concomitant]
     Active Substance: POTASSIUM CHLORIDE
  9. HYDROXYZINE [Concomitant]
     Active Substance: HYDROXYZINE HYDROCHLORIDE
  10. METHYLPREDNISOLONE. [Concomitant]
     Active Substance: METHYLPREDNISOLONE
  11. FOLIC ACID. [Concomitant]
     Active Substance: FOLIC ACID
  12. DUPIXENT [Suspect]
     Active Substance: DUPILUMAB
     Dosage: 300 MG, QOW
  13. AMLODIPINE [Concomitant]
     Active Substance: AMLODIPINE BESYLATE
  14. LORAZEPAM. [Concomitant]
     Active Substance: LORAZEPAM
  15. LOSARTAN. [Concomitant]
     Active Substance: LOSARTAN

REACTIONS (2)
  - Lacrimation increased [Unknown]
  - Endodontic procedure [Unknown]

NARRATIVE: CASE EVENT DATE: 202105
